FAERS Safety Report 18401503 (Version 4)
Quarter: 2021Q4

REPORT INFORMATION
  Report Type: Spontaneous
  Country: US (occurrence: US)
  Receive Date: 20201019
  Receipt Date: 20211115
  Transmission Date: 20220304
  Serious: No
  Sender: FDA-Public Use
  Company Number: US-PFIZER INC-2020223964

PATIENT
  Age: 11 Year
  Sex: Female

DRUGS (1)
  1. GENOTROPIN [Suspect]
     Active Substance: SOMATROPIN
     Indication: Blood growth hormone
     Dosage: 1.6 MG, DAILY

REACTIONS (4)
  - Wrong technique in device usage process [Unknown]
  - Poor quality device used [Unknown]
  - Device mechanical issue [Unknown]
  - Device breakage [Unknown]
